FAERS Safety Report 8606730 (Version 2)
Quarter: 2013Q3

REPORT INFORMATION
  Report Type: Spontaneous
  Country: US (occurrence: US)
  Receive Date: 20120611
  Receipt Date: 20130813
  Transmission Date: 20140515
  Serious: No
  Sender: FDA-Public Use
  Company Number: US-ASTRAZENECA-2012SE34939

PATIENT
  Sex: Female

DRUGS (1)
  1. NEXIUM [Suspect]
     Route: 048

REACTIONS (5)
  - Osteoporosis [Unknown]
  - Multiple fractures [Unknown]
  - Calcium deficiency [Unknown]
  - Scoliosis [Unknown]
  - Vitamin D deficiency [Unknown]
